FAERS Safety Report 15901620 (Version 6)
Quarter: 2019Q3

REPORT INFORMATION
  Report Type: Report from Study
  Country: US (occurrence: US)
  Receive Date: 20190201
  Receipt Date: 20190910
  Transmission Date: 20191004
  Serious: Yes (Hospitalization, Other)
  Sender: FDA-Public Use
  Company Number: US-ADAMAS PHARMA, LLC-2018ADA02292

PATIENT
  Age: 82 Year
  Sex: Male
  Weight: 63 kg

DRUGS (23)
  1. GOCOVRI [Suspect]
     Active Substance: AMANTADINE
     Indication: PARKINSON^S DISEASE
     Dosage: 137 MG, 1X/DAY AT BEDTIME
     Route: 048
     Dates: start: 20180823, end: 20180829
  2. GOCOVRI [Suspect]
     Active Substance: AMANTADINE
     Dosage: 137 MG, 1X/DAY AT BEDTIME
     Route: 048
  3. LOVASTATIN. [Concomitant]
     Active Substance: LOVASTATIN
     Dosage: 40 MG, 1X/DAY, AT BEDTIME
  4. DUOPA [Concomitant]
     Active Substance: CARBIDOPA\LEVODOPA
     Dosage: 1 ML, AS NEEDED, MAXIUMUM OF EVERY 1 HOUR
     Route: 048
  5. DONEPEZIL. [Concomitant]
     Active Substance: DONEPEZIL
     Dosage: 10 MG, 1X/DAY AT BEDTIME
     Route: 048
  6. MELATONIN [Concomitant]
     Active Substance: MELATONIN
     Dosage: 10 MG, 1X/DAY, AT BEDTIME
     Route: 048
  7. GLYCOLAX [Concomitant]
     Active Substance: POLYETHYLENE GLYCOL 3350
     Dosage: 1 DOSAGE UNITS, 1X/DAY
  8. FLUTICASONE SPR [Concomitant]
     Dosage: 50 ?G, 1X/DAY
     Route: 045
  9. CARB/LEVO [Concomitant]
     Active Substance: CARBIDOPA\LEVODOPA
     Dosage: 25 MG, 1X/DAY AT BEDTIME
     Route: 048
  10. GOCOVRI [Suspect]
     Active Substance: AMANTADINE
     Indication: DYSKINESIA
     Dosage: 274 MG, 1X/DAY AT BEDTIME
     Route: 048
     Dates: start: 20180830, end: 201809
  11. VITAMIN D3 [Concomitant]
     Active Substance: CHOLECALCIFEROL
     Dosage: 2000 IU, 1X/DAY
     Route: 048
  12. SINEMET CR [Concomitant]
     Active Substance: CARBIDOPA\LEVODOPA
     Dosage: UNK, 1X/DAY AT BEDTIME
  13. GOCOVRI [Suspect]
     Active Substance: AMANTADINE
     Dosage: 137 MG, 1X/DAY AT BEDTIME
     Route: 048
     Dates: start: 20181024
  14. BENEFIBER POW [Concomitant]
     Dosage: UNK
  15. SODIUM BICAR [Concomitant]
     Dosage: 325 MG, 2X/DAY
  16. DUOPA [Concomitant]
     Active Substance: CARBIDOPA\LEVODOPA
     Dosage: 13 ML/H, CONTINUOUS EVERY MORNING
     Route: 048
  17. DUOPA [Concomitant]
     Active Substance: CARBIDOPA\LEVODOPA
     Dosage: 4.0 ML, 1X/HOUR
     Route: 048
  18. ASPIRIN EC [Concomitant]
     Active Substance: ASPIRIN
     Dosage: 81 MG, 1X/DAY
  19. OMEPRAZOLE. [Concomitant]
     Active Substance: OMEPRAZOLE
     Dosage: 20 MG, 2X/DAY
  20. POLYETH GLYC POW 1450 [Concomitant]
     Dosage: 17 G, 1X/DAY
     Route: 048
  21. SINEMET [Concomitant]
     Active Substance: CARBIDOPA\LEVODOPA
     Dosage: 1 DOSAGE UNITS, 1X/DAY, AS NEEDED, AT BEDTIME
  22. ALBUTEROL-IPRATROPIUM [Concomitant]
     Active Substance: ALBUTEROL\IPRATROPIUM
     Dosage: UNK, 6X/DAY
  23. LOVASTATIN. [Concomitant]
     Active Substance: LOVASTATIN
     Dosage: 20 MG, 1X/DAY, AT BEDTIME

REACTIONS (15)
  - Jejunostomy [Not Recovered/Not Resolved]
  - Pneumonia aspiration [Unknown]
  - Small intestinal obstruction [Recovering/Resolving]
  - Metabolic encephalopathy [Unknown]
  - Movement disorder [Not Recovered/Not Resolved]
  - Dyskinesia [Not Recovered/Not Resolved]
  - Confusional state [Recovered/Resolved]
  - Dysphagia [Unknown]
  - Asthenia [Recovered/Resolved]
  - Complication associated with device [Not Recovered/Not Resolved]
  - Memory impairment [Unknown]
  - Hallucination, visual [Recovered/Resolved]
  - Blood bilirubin increased [Unknown]
  - Underdose [Unknown]
  - Gait disturbance [Recovering/Resolving]

NARRATIVE: CASE EVENT DATE: 2018
